FAERS Safety Report 4787249-3 (Version None)
Quarter: 2005Q3

REPORT INFORMATION
  Report Type: 
  Country: None (occurrence: None)
  Receive Date: 20050930
  Receipt Date: 20050916
  Transmission Date: 20060218
  Serious: Yes (Disabling, Other)
  Sender: FDA-Public Use
  Company Number: HQWYE405228AUG03

PATIENT
  Age: 57 Year
  Sex: Female
  Weight: 77.18 kg

DRUGS (7)
  1. PREMARIN [Suspect]
     Indication: OESTROGEN REPLACEMENT THERAPY
     Dosage: 0.9 INITIALLY; VARIED IN DOSAGES FROM .3 MM TO .9MM, ORAL
     Route: 048
     Dates: start: 19931001, end: 20000221
  2. ESTRACE [Suspect]
     Indication: OESTROGEN REPLACEMENT THERAPY
     Dosage: ORAL
     Route: 048
     Dates: start: 19920101, end: 20030313
  3. ESTRATAB [Suspect]
     Indication: OESTROGEN REPLACEMENT THERAPY
     Dosage: ORAL
     Route: 048
     Dates: start: 19990101, end: 19990101
  4. VITAMIN E [Concomitant]
  5. VITAMIN A [Concomitant]
  6. UNSPECIFIED CALCIUM SUPPLEMENT (UNSPECIFIED CALCIUM SUPPLEMENT) [Concomitant]
  7. ASPIRIN [Concomitant]

REACTIONS (13)
  - ASTHENIA [None]
  - BLINDNESS [None]
  - BLOOD CHOLESTEROL INCREASED [None]
  - COLLAGEN-VASCULAR DISEASE [None]
  - CONJUNCTIVAL HAEMORRHAGE [None]
  - DIZZINESS [None]
  - FATIGUE [None]
  - LOW DENSITY LIPOPROTEIN INCREASED [None]
  - NON-SMALL CELL LUNG CANCER [None]
  - RETINAL ARTERY OCCLUSION [None]
  - RETINAL TEAR [None]
  - RETINAL VEIN OCCLUSION [None]
  - VITREOUS HAEMORRHAGE [None]
